FAERS Safety Report 5816678-1 (Version None)
Quarter: 2008Q3

REPORT INFORMATION
  Report Type: 
  Country: None (occurrence: None)
  Receive Date: 20080721
  Receipt Date: 20080710
  Transmission Date: 20090109
  Serious: Yes (Hospitalization, Other)
  Sender: FDA-Public Use
  Company Number: CO-BAXTER-2008BH007363

PATIENT
  Age: 23 Year
  Sex: Female

DRUGS (7)
  1. GAMMAGARD LIQUID [Suspect]
     Indication: SYSTEMIC LUPUS ERYTHEMATOSUS
     Route: 042
     Dates: start: 20080709, end: 20080709
  2. GAMMAGARD LIQUID [Suspect]
     Indication: MULTI-ORGAN FAILURE
     Route: 042
     Dates: start: 20080709, end: 20080709
  3. GAMMAGARD LIQUID [Suspect]
     Indication: OFF LABEL USE
     Route: 042
     Dates: start: 20080709, end: 20080709
  4. CORTICOIDS [Concomitant]
     Indication: DRUG USE FOR UNKNOWN INDICATION
     Route: 065
  5. ANTIHISTAMINIC [Concomitant]
     Indication: DRUG USE FOR UNKNOWN INDICATION
     Route: 065
  6. PIPERACILINE + SULBACTAM [Concomitant]
     Indication: PSEUDOMONAS INFECTION
     Route: 042
  7. AMIKACIN [Concomitant]
     Indication: PSEUDOMONAS INFECTION
     Route: 042

REACTIONS (2)
  - ANAPHYLACTIC SHOCK [None]
  - RASH MACULAR [None]
